FAERS Safety Report 6758114-7 (Version None)
Quarter: 2010Q2

REPORT INFORMATION
  Report Type: 
  Country: None (occurrence: None)
  Receive Date: 20100607
  Receipt Date: 20100601
  Transmission Date: 20101027
  Serious: Yes (Other)
  Sender: FDA-Public Use
  Company Number: JP-ROXANE LABORATORIES, INC.-2010-RO-00654RO

PATIENT
  Age: 24 Year
  Sex: Female

DRUGS (21)
  1. CYCLOPHOSPHAMIDE [Suspect]
     Indication: B-CELL LYMPHOMA
     Dates: start: 19880401, end: 19890201
  2. CYCLOPHOSPHAMIDE [Suspect]
     Dates: start: 19931116, end: 19940224
  3. CYCLOPHOSPHAMIDE [Suspect]
     Dates: start: 20010101
  4. CYCLOPHOSPHAMIDE [Suspect]
     Dosage: 50 MG
     Dates: start: 20011201, end: 20030201
  5. METHOTREXATE [Suspect]
     Indication: B-CELL LYMPHOMA
     Dates: start: 19931116, end: 19940224
  6. DEXAMETHASONE [Suspect]
     Indication: B-CELL LYMPHOMA
     Dates: start: 19990801
  7. DEXAMETHASONE [Suspect]
     Dates: start: 20001105, end: 20001226
  8. ADRIAMYCIN PFS [Suspect]
     Indication: B-CELL LYMPHOMA
     Dates: start: 19931116, end: 19940224
  9. VINCRISTINE [Suspect]
     Indication: B-CELL LYMPHOMA
     Dates: start: 19931116, end: 19940224
  10. PREDNISOLONE [Suspect]
     Indication: B-CELL LYMPHOMA
     Dates: start: 19931116, end: 19940224
  11. BLEOMICIN [Suspect]
     Indication: B-CELL LYMPHOMA
     Dates: start: 19931116, end: 19940224
  12. MITOZANTRONE [Suspect]
     Indication: B-CELL LYMPHOMA
     Dates: start: 19990801
  13. CARBOPLATIN [Suspect]
     Indication: B-CELL LYMPHOMA
     Dates: start: 19990801
  14. ETOPOSIDE [Suspect]
     Indication: B-CELL LYMPHOMA
     Dates: start: 19990801
  15. ETOPOSIDE [Suspect]
     Dates: start: 20000126, end: 20001004
  16. ETOPOSIDE [Suspect]
     Dates: start: 20001105, end: 20001226
  17. ETOPOSIDE [Suspect]
     Dates: start: 20010101
  18. IFOSFAMIDE [Suspect]
     Indication: B-CELL LYMPHOMA
     Dates: start: 20001105, end: 20001226
  19. CYTARABINE [Suspect]
     Indication: B-CELL LYMPHOMA
     Dates: start: 20001105, end: 20001226
  20. RANIMUSTINE [Suspect]
     Indication: B-CELL LYMPHOMA
     Dates: start: 20010101
  21. RITUXIMAB [Suspect]
     Indication: B-CELL LYMPHOMA
     Dates: start: 20011030, end: 20011124

REACTIONS (3)
  - B-CELL LYMPHOMA [None]
  - MYELODYSPLASTIC SYNDROME [None]
  - PANCYTOPENIA [None]
